FAERS Safety Report 7490940-1 (Version None)
Quarter: 2011Q2

REPORT INFORMATION
  Report Type: 
  Country: None (occurrence: None)
  Receive Date: 20110519
  Receipt Date: 20110503
  Transmission Date: 20111010
  Serious: No
  Sender: FDA-Public Use
  Company Number: US-B.I. PHARMACEUTICALS,INC./RIDGEFIELD-2011-BP-12321BP

PATIENT
  Sex: Female

DRUGS (11)
  1. SUPER B COMPLEX [Concomitant]
     Indication: PROPHYLAXIS
     Route: 048
  2. FISH OIL [Concomitant]
     Indication: PROPHYLAXIS
     Dosage: 1200 MG
     Route: 048
  3. SYNTHROID [Concomitant]
     Indication: HYPOTHYROIDISM
     Dosage: 0.5 MG
     Route: 048
     Dates: start: 19960101
  4. FLONASE [Concomitant]
     Indication: HYPERSENSITIVITY
     Dosage: 50 MCG
  5. LIPITOR [Concomitant]
     Indication: BLOOD CHOLESTEROL INCREASED
     Dosage: 20 MG
     Route: 048
  6. CALCIUM WITH D [Concomitant]
     Indication: PROPHYLAXIS
     Dosage: 1200 MG
     Route: 048
  7. CO Q10 [Concomitant]
     Indication: PROPHYLAXIS
     Dosage: 200 MG
     Route: 048
  8. AROMASIN [Concomitant]
     Indication: BREAST CANCER
     Dosage: 25 MG
     Route: 048
     Dates: start: 20060101
  9. MVI (CENTRUM) [Concomitant]
     Indication: PROPHYLAXIS
     Route: 048
  10. PRADAXA [Suspect]
     Indication: ATRIAL FIBRILLATION
     Dosage: 300 MG
     Route: 048
     Dates: start: 20110226
  11. CLARINEX [Concomitant]
     Indication: HYPERSENSITIVITY
     Dosage: 5 MG
     Route: 048

REACTIONS (1)
  - ABDOMINAL DISTENSION [None]
